FAERS Safety Report 9659388 (Version 1)
Quarter: 2013Q4

REPORT INFORMATION
  Report Type: Spontaneous
  Country: FR (occurrence: FR)
  Receive Date: 20131031
  Receipt Date: 20131031
  Transmission Date: 20140711
  Serious: Yes (Hospitalization)
  Sender: FDA-Public Use
  Company Number: FR-JNJFOC-20131015802

PATIENT
  Age: 45 Year
  Sex: Female

DRUGS (19)
  1. XEPLION [Suspect]
     Indication: PRODUCT USED FOR UNKNOWN INDICATION
     Route: 030
     Dates: start: 20130826
  2. XEPLION [Suspect]
     Indication: PRODUCT USED FOR UNKNOWN INDICATION
     Route: 030
     Dates: start: 20130921
  3. VALIUM [Suspect]
     Indication: PRODUCT USED FOR UNKNOWN INDICATION
     Route: 065
     Dates: start: 20130906
  4. DEPAKINE [Suspect]
     Indication: PRODUCT USED FOR UNKNOWN INDICATION
     Route: 065
     Dates: start: 20130909
  5. LEVOTHYROX [Concomitant]
     Dosage: LONG TERM
     Route: 065
  6. NICOBION [Concomitant]
     Dosage: LONG TERM
     Route: 065
     Dates: end: 20130902
  7. VITAMIN B1 B6 [Concomitant]
     Dosage: LONG TERM
     Route: 065
     Dates: end: 20130902
  8. DOLIPRANE [Concomitant]
     Dosage: 1 G, 1 TO 3 TABLETS
     Route: 065
     Dates: start: 20130314, end: 20130915
  9. MODECATE [Concomitant]
     Route: 065
     Dates: start: 20130322, end: 20130902
  10. DEPAMIDE [Concomitant]
     Route: 065
     Dates: start: 20130607, end: 20130902
  11. TERCIAN [Concomitant]
     Dosage: 25 M, 3 TO 5 TABLETS
     Route: 065
     Dates: start: 20130902, end: 20130910
  12. AMOXICILLIN CLAVULANIC ACID [Concomitant]
     Dosage: 1G/125 MG, 3 SACKS
     Route: 065
     Dates: start: 20130903
  13. SPECIAFOLDINE [Concomitant]
     Route: 065
     Dates: start: 20130903
  14. OFLOXACIN [Concomitant]
     Route: 065
     Dates: start: 20130903, end: 20130904
  15. ABILIFY [Concomitant]
     Dosage: ONE INJECTION
     Route: 065
     Dates: start: 20130906
  16. IBUPROFENE [Concomitant]
     Route: 065
     Dates: start: 20130906, end: 20130916
  17. LOXAPAC [Concomitant]
     Dosage: 600 DROPS A DAY
     Route: 065
     Dates: start: 20130910, end: 20130916
  18. SERESTA [Concomitant]
     Route: 065
     Dates: start: 20130915, end: 20130916
  19. TERBINAFINE [Concomitant]
     Route: 065
     Dates: start: 20130919

REACTIONS (2)
  - Hyporeflexia [Unknown]
  - Hyporeflexia [Unknown]
